FAERS Safety Report 5093353-5 (Version None)
Quarter: 2006Q3

REPORT INFORMATION
  Report Type: 
  Country: None (occurrence: None)
  Receive Date: 20060828
  Receipt Date: 20060816
  Transmission Date: 20061208
  Serious: Yes (Other)
  Sender: FDA-Public Use
  Company Number: GXKR2006GB04910

PATIENT
  Age: 71 Year
  Sex: Male

DRUGS (10)
  1. IBUPROFEN [Suspect]
     Indication: BACK PAIN
     Dosage: 400 MG, TID, ORAL
     Route: 048
     Dates: end: 20060310
  2. AMITRIPTYLINE (AMITRIPTYLINE) [Concomitant]
  3. ASPIRIN [Concomitant]
  4. ATORVASTATIN CALCIUM [Concomitant]
  5. DILTIAZEM [Concomitant]
  6. DILTIAZEM [Concomitant]
  7. FUROSEMIDE [Concomitant]
  8. NITROGLYCERIN [Concomitant]
  9. ISOSORBIDE MONONITRATE [Concomitant]
  10. PERINDOPRIL ERBUMINE [Concomitant]

REACTIONS (1)
  - ANGINA PECTORIS [None]
